FAERS Safety Report 19043206 (Version 3)
Quarter: 2024Q1

REPORT INFORMATION
  Report Type: Spontaneous
  Country: US (occurrence: US)
  Receive Date: 20210323
  Receipt Date: 20240319
  Transmission Date: 20240410
  Serious: Yes (Hospitalization, Other)
  Sender: FDA-Public Use
  Company Number: US-AMNEAL PHARMACEUTICALS-2021-AMRX-00844

PATIENT
  Age: 29 Year
  Sex: Female
  Weight: 56.236 kg

DRUGS (12)
  1. ACTIVELLA [Suspect]
     Active Substance: ESTRADIOL\NORETHINDRONE ACETATE
     Indication: Endometriosis
     Dosage: EVERY 1 DAYS
     Route: 048
     Dates: start: 20190109, end: 20191208
  2. ACTIVELLA [Suspect]
     Active Substance: ESTRADIOL\NORETHINDRONE ACETATE
     Dosage: 1.0/0.5 MG, EVERY 1 DAYS
     Route: 048
     Dates: start: 20191209, end: 20210218
  3. ACTIVELLA [Suspect]
     Active Substance: ESTRADIOL\NORETHINDRONE ACETATE
     Dosage: 1.0/0.5 MG, EVERY 1 DAYS
     Route: 048
     Dates: start: 20210222
  4. ELAGOLIX [Suspect]
     Active Substance: ELAGOLIX
     Indication: Endometriosis
     Dosage: EVERY 1 DAYS
     Route: 048
     Dates: start: 20190109, end: 20191208
  5. ELAGOLIX [Suspect]
     Active Substance: ELAGOLIX
     Dosage: 1.0/0.5 MG, EVERY 1 DAYS
     Route: 048
     Dates: start: 20191209, end: 20210218
  6. ELAGOLIX [Suspect]
     Active Substance: ELAGOLIX
     Dosage: 1.0/0.5 MG, EVERY 1 DAYS
     Route: 048
     Dates: start: 20210222
  7. ALBUTEROL [Concomitant]
     Active Substance: ALBUTEROL
     Indication: Asthma
     Dosage: 90 MICROGRAM AS NEEDED
     Dates: start: 201804
  8. CETIRIZINE [Concomitant]
     Active Substance: CETIRIZINE HYDROCHLORIDE
     Indication: Seasonal allergy
     Dosage: 10 MILLIGRAM, DAILY
     Route: 048
     Dates: start: 2003
  9. MONTELUKAST [Concomitant]
     Active Substance: MONTELUKAST SODIUM
     Indication: Asthma
     Dosage: 10 MILLIGRAM, DAILY
     Route: 048
     Dates: start: 201804
  10. RANITIDINE [Concomitant]
     Active Substance: RANITIDINE
     Indication: Gastrooesophageal reflux disease
     Dosage: 300 MILLIGRAM, AS NEEDED
     Route: 048
     Dates: start: 2010
  11. TRIAMCINOLONE [Concomitant]
     Active Substance: TRIAMCINOLONE
     Indication: Eczema
     Dosage: 1 APPLICATION AS NEEDED
     Route: 061
     Dates: start: 201804
  12. QVAR [Concomitant]
     Active Substance: BECLOMETHASONE DIPROPIONATE
     Indication: Asthma
     Dosage: 80 MICROGRAM, 2X/DAY
     Dates: start: 20190525

REACTIONS (1)
  - Appendicitis [Recovered/Resolved]

NARRATIVE: CASE EVENT DATE: 20210220
